FAERS Safety Report 10440834 (Version 1)
Quarter: 2014Q3

REPORT INFORMATION
  Report Type: Spontaneous
  Country: US (occurrence: None)
  Receive Date: 20140905
  Receipt Date: 20140905
  Transmission Date: 20150326
  Serious: No
  Sender: FDA-Public Use
  Company Number: None

PATIENT
  Age: 89 Year
  Sex: Male
  Weight: 57.15 kg

DRUGS (1)
  1. IC MOMTASONE FUROAT 0.1% SOLUTION (MOMETASONE FUROATE) PERRIGO [Suspect]
     Active Substance: MOMETASONE FUROATE
     Indication: ROSACEA
     Dosage: TOPICALLY DAILY, ONCE DAILY, APPLIED TO A SURFACE, USUALLY THE SKIN
     Dates: start: 20140902, end: 20140902

REACTIONS (5)
  - Application site warmth [None]
  - Application site pruritus [None]
  - Application site swelling [None]
  - Formication [None]
  - Application site erythema [None]

NARRATIVE: CASE EVENT DATE: 20140902
